FAERS Safety Report 10645925 (Version 1)
Quarter: 2014Q4

REPORT INFORMATION
  Report Type: Spontaneous
  Country: US (occurrence: None)
  Receive Date: 20141203
  Receipt Date: 20141203
  Transmission Date: 20150529
  Serious: No
  Sender: FDA-Public Use
  Company Number: 1406USA008686

PATIENT
  Age: 18 Year
  Sex: Female

DRUGS (1)
  1. GRASTEK [Suspect]
     Active Substance: PHLEUM PRATENSE POLLEN
     Indication: MULTIPLE ALLERGIES
     Dosage: 2800 BAU/ONCE DAILY, SUBLINGUAL
     Route: 060

REACTIONS (5)
  - Swollen tongue [None]
  - Throat irritation [None]
  - Glossitis [None]
  - Pharyngeal oedema [None]
  - Glossodynia [None]
